FAERS Safety Report 21651350 (Version 2)
Quarter: 2022Q4

REPORT INFORMATION
  Report Type: Spontaneous
  Country: US (occurrence: US)
  Receive Date: 20221128
  Receipt Date: 20221128
  Transmission Date: 20230112
  Serious: Yes (Life-Threatening, Other)
  Sender: FDA-Public Use
  Company Number: US-PFIZER INC-202201323903

PATIENT
  Age: 65 Year
  Sex: Female

DRUGS (4)
  1. FILGRASTIM [Suspect]
     Active Substance: FILGRASTIM
     Indication: Chloroma
     Dosage: UNK
  2. CYTARABINE [Suspect]
     Active Substance: CYTARABINE
     Indication: Chloroma
     Dosage: UNK UNK, CYCLIC
  3. MITOXANTRONE HYDROCHLORIDE [Suspect]
     Active Substance: MITOXANTRONE HYDROCHLORIDE
     Indication: Chloroma
     Dosage: UNK
  4. CLADRIBINE [Suspect]
     Active Substance: CLADRIBINE
     Indication: Chloroma
     Dosage: UNK

REACTIONS (2)
  - Neutropenic colitis [Unknown]
  - Hyperbilirubinaemia [Unknown]
